FAERS Safety Report 7801727-1 (Version None)
Quarter: 2011Q4

REPORT INFORMATION
  Report Type: 
  Country: None (occurrence: None)
  Receive Date: 20111005
  Receipt Date: 20110919
  Transmission Date: 20120403
  Serious: Yes (Hospitalization, Other)
  Sender: FDA-Public Use
  Company Number: 2011P1008989

PATIENT
  Age: 44 Year
  Sex: Female

DRUGS (1)
  1. METHIMAZOLE [Suspect]
     Indication: BASEDOW'S DISEASE
     Dosage: 30 MG;QD

REACTIONS (9)
  - PSEUDOMONAS INFECTION [None]
  - LEUKOPENIA [None]
  - PYREXIA [None]
  - AGRANULOCYTOSIS [None]
  - BLOOD CULTURE POSITIVE [None]
  - OROPHARYNGEAL PAIN [None]
  - IMPAIRED HEALING [None]
  - CULTURE THROAT POSITIVE [None]
  - HYPERTHYROIDISM [None]
